FAERS Safety Report 11784659 (Version 1)
Quarter: 2015Q4

REPORT INFORMATION
  Report Type: Report from Study
  Country: US (occurrence: US)
  Receive Date: 20151130
  Receipt Date: 20151130
  Transmission Date: 20160305
  Serious: Yes (Hospitalization)
  Sender: FDA-Public Use
  Company Number: US-ACTELION-A-US2013-88500

PATIENT
  Age: 55 Year
  Sex: Female

DRUGS (4)
  1. VITAMIN C [Concomitant]
     Active Substance: ASCORBIC ACID
  2. VELETRI [Suspect]
     Active Substance: EPOPROSTENOL
     Indication: PULMONARY ARTERIAL HYPERTENSION
     Dosage: 20.8 UNK, UNK
     Route: 042
     Dates: start: 20111111
  3. VELETRI [Suspect]
     Active Substance: EPOPROSTENOL
     Dosage: 20.8 NG/KG, PER MIN
     Route: 042
     Dates: start: 20111207
  4. ADCIRCA [Concomitant]
     Active Substance: TADALAFIL

REACTIONS (7)
  - Fluid retention [Unknown]
  - Oedema peripheral [Unknown]
  - Cystitis [Recovered/Resolved]
  - Blood potassium decreased [Unknown]
  - Muscle strain [Unknown]
  - Fluid intake restriction [Unknown]
  - Dyspepsia [Recovering/Resolving]
